FAERS Safety Report 8368142-6 (Version None)
Quarter: 2012Q2

REPORT INFORMATION
  Report Type: 
  Country: None (occurrence: None)
  Receive Date: 20120517
  Receipt Date: 20120514
  Transmission Date: 20120825
  Serious: Yes (Hospitalization)
  Sender: FDA-Public Use
  Company Number: TW-ROXANE LABORATORIES, INC.-2012-RO-01236RO

PATIENT
  Age: 53 Year
  Sex: Female

DRUGS (11)
  1. ZOLPIDEM [Suspect]
     Dosage: 30 MG
  2. CLONAZEPAM [Suspect]
     Indication: DETOXIFICATION
     Dosage: 3 MG
  3. QUETIAPINE FUMARATE [Suspect]
     Dosage: 25 MG
  4. PAROXETINE [Suspect]
     Dosage: 60 MG
  5. FLUNITRAZEPAM [Suspect]
     Dosage: 2 MG
  6. FLUNITRAZEPAM [Suspect]
     Dosage: 1 MG
  7. SERTRALINE HYDROCHLORIDE [Suspect]
     Dosage: 100 MG
  8. ZOLPIDEM [Suspect]
     Indication: INSOMNIA
     Dosage: 10 MG
  9. ZOLPIDEM [Suspect]
  10. FLUNITRAZEPAM [Suspect]
     Dosage: 2.5 MG
  11. PAROXETINE [Suspect]
     Dosage: 40 MG

REACTIONS (10)
  - WITHDRAWAL SYNDROME [None]
  - DRUG DEPENDENCE [None]
  - IRRITABILITY [None]
  - DEPENDENCE [None]
  - TREMOR [None]
  - INCORRECT DOSE ADMINISTERED [None]
  - DRUG WITHDRAWAL SYNDROME [None]
  - PALPITATIONS [None]
  - ANXIETY [None]
  - INSOMNIA [None]
